FAERS Safety Report 9180078 (Version 1)
Quarter: 2012Q4

REPORT INFORMATION
  Report Type: 
  Country: US (occurrence: US)
  Receive Date: 20121029
  Receipt Date: 20121029
  Transmission Date: 20130627
  Serious: No
  Sender: FDA-Public Use
  Company Number: US-009507513-1210USA011126

PATIENT
  Age: 66 None
  Sex: Female

DRUGS (2)
  1. JANUVIA [Suspect]
     Indication: DIABETES MELLITUS
     Dosage: 100 mg, qd
     Route: 048
     Dates: start: 20121023, end: 20121023
  2. ATENOLOL [Concomitant]

REACTIONS (8)
  - Skin irritation [Unknown]
  - Vision blurred [Unknown]
  - Rhinorrhoea [Unknown]
  - Dry throat [Unknown]
  - Tinnitus [Unknown]
  - Asthenia [Unknown]
  - Dizziness [Unknown]
  - Dyspnoea [Unknown]
